FAERS Safety Report 11589139 (Version 1)
Quarter: 2015Q4

REPORT INFORMATION
  Report Type: Spontaneous
  Country: US (occurrence: None)
  Receive Date: 20151001
  Receipt Date: 20151001
  Transmission Date: 20160304
  Serious: No
  Sender: FDA-Public Use
  Company Number: None

PATIENT
  Age: 60 Year
  Weight: 68.49 kg

DRUGS (4)
  1. VALGANCICLOVIR [Concomitant]
     Active Substance: VALGANCICLOVIR
  2. TACROLIMUS 1MG ACCORD HEALTHCARE [Suspect]
     Active Substance: TACROLIMUS
     Indication: RENAL TRANSPLANT
     Route: 048
     Dates: start: 20150802
  3. SULFA/TMP [Concomitant]
  4. PREDNISONE. [Concomitant]
     Active Substance: PREDNISONE

REACTIONS (1)
  - Tremor [None]

NARRATIVE: CASE EVENT DATE: 20150903
